FAERS Safety Report 6338956-2 (Version None)
Quarter: 2009Q3

REPORT INFORMATION
  Report Type: 
  Country: None (occurrence: None)
  Receive Date: 20090903
  Receipt Date: 20090825
  Transmission Date: 20100115
  Serious: Yes (Hospitalization)
  Sender: FDA-Public Use
  Company Number: IT-ASTRAZENECA-2009SE09897

PATIENT
  Age: 78 Year
  Sex: Male

DRUGS (3)
  1. OMEPRAZOLE [Suspect]
     Indication: HELICOBACTER INFECTION
  2. AMOXICILLIN [Concomitant]
  3. CLARITHROMYCIN [Concomitant]

REACTIONS (3)
  - DEHYDRATION [None]
  - DELIRIUM [None]
  - ERYTHEMA [None]
